FAERS Safety Report 20702937 (Version 1)
Quarter: 2022Q2

REPORT INFORMATION
  Report Type: Spontaneous
  Country: US (occurrence: US)
  Receive Date: 20220413
  Receipt Date: 20220413
  Transmission Date: 20220720
  Serious: No
  Sender: FDA-Public Use
  Company Number: US-AMGEN-USASP2022062742

PATIENT
  Age: 41 Year
  Sex: Male

DRUGS (2)
  1. OTEZLA [Suspect]
     Active Substance: APREMILAST
     Indication: Drug therapy
     Dosage: 30 MILLIGRAM, BID
     Route: 065
     Dates: start: 20220315
  2. OTEZLA [Suspect]
     Active Substance: APREMILAST
     Indication: Off label use

REACTIONS (3)
  - Depression [Not Recovered/Not Resolved]
  - Illness [Not Recovered/Not Resolved]
  - Off label use [Unknown]

NARRATIVE: CASE EVENT DATE: 20220101
